FAERS Safety Report 6162944-2 (Version None)
Quarter: 2009Q2

REPORT INFORMATION
  Report Type: 
  Country: None (occurrence: None)
  Receive Date: 20090420
  Receipt Date: 20090408
  Transmission Date: 20091009
  Serious: Yes (Hospitalization)
  Sender: FDA-Public Use
  Company Number: 2008AP003206

PATIENT
  Sex: Female

DRUGS (1)
  1. EPLERENONE [Suspect]
     Dosage: 25 MG; ;PO
     Route: 048

REACTIONS (3)
  - DYSPNOEA [None]
  - RENAL FAILURE [None]
  - WEIGHT INCREASED [None]
